FAERS Safety Report 14116009 (Version 2)
Quarter: 2017Q4

REPORT INFORMATION
  Report Type: Report from Study
  Country: US (occurrence: US)
  Receive Date: 20171023
  Receipt Date: 20171115
  Transmission Date: 20180321
  Serious: Yes (Hospitalization)
  Sender: FDA-Public Use
  Company Number: US-EISAI MEDICAL RESEARCH-EC-2017-028560

PATIENT
  Age: 70 Year
  Sex: Female
  Weight: 93 kg

DRUGS (23)
  1. LENVIMA [Suspect]
     Active Substance: LENVATINIB
     Route: 048
     Dates: start: 20170601, end: 2017
  2. CARVEDILOL. [Concomitant]
     Active Substance: CARVEDILOL
  3. AMLODIPINE [Concomitant]
     Active Substance: AMLODIPINE BESYLATE
  4. SYNTHROID [Concomitant]
     Active Substance: LEVOTHYROXINE SODIUM
  5. CALCIUM CARBONATE. [Concomitant]
     Active Substance: CALCIUM CARBONATE
  6. HYDRALAZINE HCL [Concomitant]
     Active Substance: HYDRALAZINE HYDROCHLORIDE
  7. JANUVIA [Concomitant]
     Active Substance: SITAGLIPTIN PHOSPHATE
  8. VITAMIN D3 [Concomitant]
     Active Substance: CHOLECALCIFEROL
  9. GABAPENTIN. [Concomitant]
     Active Substance: GABAPENTIN
  10. IMODIUM [Concomitant]
     Active Substance: LOPERAMIDE HYDROCHLORIDE
  11. CEPHALEXIN. [Concomitant]
     Active Substance: CEPHALEXIN
  12. TOUJEO [Concomitant]
     Active Substance: INSULIN GLARGINE
  13. COLCRYS [Concomitant]
     Active Substance: COLCHICINE
  14. MULTIVITAMINS [Concomitant]
     Active Substance: VITAMINS
  15. SENNA PLUS [Concomitant]
     Active Substance: DOCUSATE SODIUM\SENNOSIDES\SENNOSIDES A AND B
  16. LENVIMA [Suspect]
     Active Substance: LENVATINIB
     Indication: THYROID CANCER
     Route: 048
     Dates: start: 20160115
  17. POTASSIUM CHLORIDE. [Concomitant]
     Active Substance: POTASSIUM CHLORIDE
  18. XGEVA [Concomitant]
     Active Substance: DENOSUMAB
  19. DOXAZOSIN MESYLATE. [Concomitant]
     Active Substance: DOXAZOSIN MESYLATE
  20. DIPHENOXYLATE-ATROPINE [Concomitant]
  21. MONTELUKAST [Concomitant]
     Active Substance: MONTELUKAST SODIUM
  22. ESOMEPRAZOLE MAGNESIUM. [Concomitant]
     Active Substance: ESOMEPRAZOLE MAGNESIUM
  23. TRAMADOL. [Concomitant]
     Active Substance: TRAMADOL

REACTIONS (19)
  - Skin wrinkling [Unknown]
  - Fatigue [Not Recovered/Not Resolved]
  - Malignant neoplasm progression [Unknown]
  - Blood glucose decreased [Unknown]
  - Blood pressure fluctuation [Unknown]
  - Skin discolouration [Unknown]
  - Peripheral swelling [Unknown]
  - Confusional state [Unknown]
  - Hypoaesthesia [Not Recovered/Not Resolved]
  - Paraesthesia [Unknown]
  - Body temperature decreased [Unknown]
  - Photopsia [Unknown]
  - Headache [Unknown]
  - Diarrhoea [Recovering/Resolving]
  - Infection [Unknown]
  - Rash [Unknown]
  - Hyperhidrosis [Unknown]
  - Nausea [Unknown]
  - Hypertension [Unknown]

NARRATIVE: CASE EVENT DATE: 2017
